FAERS Safety Report 12078190 (Version 1)
Quarter: 2016Q1

REPORT INFORMATION
  Report Type: Report from Study
  Country: US (occurrence: US)
  Receive Date: 20160215
  Receipt Date: 20160215
  Transmission Date: 20160526
  Serious: No
  Sender: FDA-Public Use
  Company Number: PHEH2016US003101

PATIENT
  Age: 5 Year
  Sex: Female

DRUGS (4)
  1. AZATHIOPRINE. [Concomitant]
     Active Substance: AZATHIOPRINE
     Indication: PRODUCT USED FOR UNKNOWN INDICATION
     Dosage: 2.5 OF 10 MG/ML, UNK
     Route: 065
  2. AZATHIOPRINE. [Concomitant]
     Active Substance: AZATHIOPRINE
     Dosage: UNK
     Route: 048
  3. VALCYTE [Concomitant]
     Active Substance: VALGANCICLOVIR HYDROCHLORIDE
     Indication: PRODUCT USED FOR UNKNOWN INDICATION
     Dosage: 4.4 ML OF 50 ML, UNK (STOPPED TWO WEEKS AGO)
     Route: 065
  4. NEORAL [Suspect]
     Active Substance: CYCLOSPORINE
     Indication: HEART TRANSPLANT
     Dosage: 0.63 ML, Q12H
     Route: 042

REACTIONS (10)
  - Decreased appetite [Recovering/Resolving]
  - Aggression [Unknown]
  - Wrong technique in product usage process [Unknown]
  - Mental disorder [Unknown]
  - Gingival hyperplasia [Unknown]
  - Insomnia [Unknown]
  - Hair growth abnormal [Unknown]
  - Vomiting [Unknown]
  - Product use issue [Unknown]
  - Abnormal behaviour [Unknown]
